FAERS Safety Report 15195640 (Version 2)
Quarter: 2018Q3

REPORT INFORMATION
  Report Type: Spontaneous
  Country: NZ (occurrence: NZ)
  Receive Date: 20180725
  Receipt Date: 20180829
  Transmission Date: 20181010
  Serious: Yes (Other)
  Sender: FDA-Public Use
  Company Number: NZ-ABBVIE-18S-118-2430303-00

PATIENT
  Sex: Female
  Weight: 47 kg

DRUGS (7)
  1. RIBAVIRIN. [Suspect]
     Active Substance: RIBAVIRIN
     Indication: PRODUCT USED FOR UNKNOWN INDICATION
     Route: 048
     Dates: end: 2013
  2. METHADONE [Concomitant]
     Active Substance: METHADONE HYDROCHLORIDE
     Indication: ANKYLOSING SPONDYLITIS
     Route: 048
  3. OMEPRAZOLE. [Concomitant]
     Active Substance: OMEPRAZOLE
     Indication: GASTROOESOPHAGEAL REFLUX DISEASE
     Route: 048
  4. VIEKIRA PAK [Suspect]
     Active Substance: DASABUVIR\OMBITASVIR\PARITAPREVIR\RITONAVIR
     Indication: HEPATITIS C
     Route: 048
     Dates: start: 20171027, end: 20180116
  5. RIBAVIRIN. [Suspect]
     Active Substance: RIBAVIRIN
     Dosage: 1000 MG BD IN SPLIT DOSE
     Route: 048
     Dates: start: 20171027, end: 20180116
  6. HUMIRA [Concomitant]
     Active Substance: ADALIMUMAB
     Indication: ANKYLOSING SPONDYLITIS
     Dosage: FREQUENCY 2X14
     Route: 058
     Dates: start: 20170120
  7. NAPROXEN. [Concomitant]
     Active Substance: NAPROXEN
     Indication: ANKYLOSING SPONDYLITIS
     Route: 048

REACTIONS (4)
  - Hepatitis C [Unknown]
  - Multimorbidity [Unknown]
  - Osteonecrosis of jaw [Unknown]
  - Tooth extraction [Unknown]

NARRATIVE: CASE EVENT DATE: 2015
